FAERS Safety Report 6692154-1 (Version None)
Quarter: 2010Q2

REPORT INFORMATION
  Report Type: 
  Country: None (occurrence: None)
  Receive Date: 20100422
  Receipt Date: 20090505
  Transmission Date: 20101027
  Serious: No
  Sender: FDA-Public Use
  Company Number: US-ASTRAZENECA-2009UW11385

PATIENT
  Age: 72 Year
  Sex: Female
  Weight: 68.9 kg

DRUGS (4)
  1. TOPROL-XL [Suspect]
     Route: 048
  2. COUMADIN [Concomitant]
     Indication: CARDIAC DISORDER
  3. HYDROCHLOROTHIAZIDE [Concomitant]
     Indication: HYPERTENSION
  4. ENALAPRIL MALEATE [Concomitant]
     Indication: HYPERTENSION

REACTIONS (1)
  - BACK PAIN [None]
